FAERS Safety Report 8866102 (Version 2)
Quarter: 2012Q4

REPORT INFORMATION
  Report Type: Report from Study
  Country: US (occurrence: US)
  Receive Date: 20121025
  Receipt Date: 20121214
  Transmission Date: 20130627
  Serious: Yes (Death, Other)
  Sender: FDA-Public Use
  Company Number: US-ABBOTT-12P-163-1000175-00

PATIENT
  Sex: Female
  Weight: 86.71 kg

DRUGS (1)
  1. HUMIRA [Suspect]
     Indication: RHEUMATOID ARTHRITIS
     Dates: end: 20121020

REACTIONS (8)
  - Colitis [Fatal]
  - Chronic hepatic failure [Fatal]
  - Hepatitis C [Fatal]
  - Abdominal pain upper [Fatal]
  - Back pain [Fatal]
  - Hepatic cirrhosis [Unknown]
  - Psoriasis [Unknown]
  - Arthritis [Unknown]
